FAERS Safety Report 5715654-7 (Version None)
Quarter: 2008Q2

REPORT INFORMATION
  Report Type: 
  Country: None (occurrence: None)
  Receive Date: 20080423
  Receipt Date: 20080423
  Transmission Date: 20081010
  Serious: Yes (Other)
  Sender: FDA-Public Use
  Company Number: None

PATIENT
  Sex: Male
  Weight: 60.2 kg

DRUGS (14)
  1. DEXAMETHASONE [Suspect]
     Indication: PROSTATE CANCER
     Dosage: 8MG DAILY WITH CHEMO PO
     Route: 048
     Dates: start: 20080128
  2. PREDNISONE [Suspect]
     Indication: PROSTATE CANCER
     Dosage: 5MG TWICE DAILY PO
     Route: 048
     Dates: start: 20080129
  3. LISINOPRIL [Concomitant]
  4. ZOLADEX [Concomitant]
  5. ZOLOFT [Concomitant]
  6. ZOMETA [Concomitant]
  7. MULTI-VITAMIN [Concomitant]
  8. ASPIRIN [Concomitant]
  9. TAXOTERE [Concomitant]
  10. CORCIDIN D [Concomitant]
  11. AMBIEN [Concomitant]
  12. NEULASTA [Concomitant]
  13. OXYCODONE HCL [Concomitant]
  14. REGULAR INSULIN [Concomitant]

REACTIONS (2)
  - DRUG TOXICITY [None]
  - HYPERGLYCAEMIA [None]
